FAERS Safety Report 4981334-9 (Version None)
Quarter: 2006Q2

REPORT INFORMATION
  Report Type: 
  Country: None (occurrence: None)
  Receive Date: 20060424
  Receipt Date: 20060410
  Transmission Date: 20061013
  Serious: Yes (Death, Hospitalization, Other)
  Sender: FDA-Public Use
  Company Number: US-MERCK-0604USA01894

PATIENT
  Age: 35 Year
  Sex: Female
  Weight: 55 kg

DRUGS (2)
  1. VIOXX [Suspect]
     Indication: ARTHRITIS
     Route: 048
     Dates: start: 20030101, end: 20040101
  2. [THERAPY UNSPECIFIED] [Concomitant]
     Route: 065

REACTIONS (15)
  - ASCITES [None]
  - AXILLARY MASS [None]
  - CARDIAC DISORDER [None]
  - CONVULSION [None]
  - DEATH [None]
  - FALL [None]
  - HYPERLIPIDAEMIA [None]
  - LOSS OF CONSCIOUSNESS [None]
  - MYOCARDIAL INFARCTION [None]
  - NECK MASS [None]
  - PALPITATIONS [None]
  - PNEUMONIA [None]
  - RENAL FAILURE [None]
  - TACHYCARDIA [None]
  - UTERINE LEIOMYOMA [None]
